FAERS Safety Report 5425294-5 (Version None)
Quarter: 2007Q3

REPORT INFORMATION
  Report Type: 
  Country: None (occurrence: None)
  Receive Date: 20070824
  Receipt Date: 20070816
  Transmission Date: 20080115
  Serious: Yes (Other)
  Sender: FDA-Public Use
  Company Number: US-PFIZER INC-2007055098

PATIENT
  Sex: Female
  Weight: 60.9 kg

DRUGS (2)
  1. XALATAN [Suspect]
     Indication: GLAUCOMA
     Dates: start: 20040901, end: 20070617
  2. SYSTANE [Concomitant]

REACTIONS (4)
  - DRUG INEFFECTIVE [None]
  - EYE DISORDER [None]
  - INTRAOCULAR PRESSURE INCREASED [None]
  - SURGERY [None]
